FAERS Safety Report 8503214-4 (Version None)
Quarter: 2012Q2

REPORT INFORMATION
  Report Type: 
  Country: None (occurrence: None)
  Receive Date: 20120405
  Receipt Date: 20101007
  Transmission Date: 20120825
  Serious: Yes (Other)
  Sender: FDA-Public Use
  Company Number: PHEH2010US03822

PATIENT
  Age: 59 Year
  Sex: Male

DRUGS (1)
  1. RECLAST [Suspect]
     Indication: OSTEOPOROSIS
     Dosage: 5 MG, ONCE/SINGLE, INTRAVENOUS
     Route: 042
     Dates: start: 20100908

REACTIONS (5)
  - INFLUENZA LIKE ILLNESS [None]
  - PYREXIA [None]
  - CHILLS [None]
  - PAIN [None]
  - MUSCULAR WEAKNESS [None]
